FAERS Safety Report 8571935-3 (Version None)
Quarter: 2012Q3

REPORT INFORMATION
  Report Type: 
  Country: None (occurrence: None)
  Receive Date: 20120806
  Receipt Date: 20120731
  Transmission Date: 20120928
  Serious: Yes (Hospitalization)
  Sender: FDA-Public Use
  Company Number: BE-PFIZER INC-2012186655

PATIENT
  Age: 54 Year
  Sex: Male
  Weight: 91.5 kg

DRUGS (6)
  1. GENOTROPIN [Suspect]
     Dosage: 0.3 MG 7/WK
     Route: 058
     Dates: start: 20040528
  2. TESTOSTERONE PHENYL PROPIONATE INJ [Concomitant]
     Indication: BLOOD FOLLICLE STIMULATING HORMONE ABNORMAL
  3. DEPAKENE [Concomitant]
     Indication: CONVULSION
  4. HYDROCORTISONE [Concomitant]
     Indication: BLOOD CORTICOTROPHIN ABNORMAL
     Dosage: UNK
     Dates: start: 19910201
  5. DEPAKENE [Concomitant]
     Indication: EPILEPSY
     Dosage: UNK
     Dates: start: 19991227
  6. TESTOSTERONE PHENYL PROPIONATE INJ [Concomitant]
     Indication: BLOOD LUTEINISING HORMONE DECREASED
     Dosage: UNK
     Dates: start: 20050527

REACTIONS (1)
  - WRIST FRACTURE [None]
